FAERS Safety Report 4983606-0 (Version None)
Quarter: 2006Q2

REPORT INFORMATION
  Report Type: 
  Country: None (occurrence: None)
  Receive Date: 20060425
  Receipt Date: 20060425
  Transmission Date: 20061013
  Serious: Yes (Other)
  Sender: FDA-Public Use
  Company Number: None

PATIENT
  Age: 70 Year
  Sex: Male
  Weight: 114.3 kg

DRUGS (11)
  1. ZOCOR [Suspect]
  2. FELODIPINE [Concomitant]
  3. IBUPROFEN [Concomitant]
  4. TERAZOSIN HCL [Concomitant]
  5. VENLAFAXINE HCL [Concomitant]
  6. METOCLOPRAMIDE HCL [Concomitant]
  7. LORATADINE [Concomitant]
  8. COUMADIN [Concomitant]
  9. SIMVASTATIN [Concomitant]
  10. FLUNISOLIDE INHL [Concomitant]
  11. COLCHICINE [Concomitant]

REACTIONS (1)
  - MYALGIA [None]
